FAERS Safety Report 4517144-6 (Version None)
Quarter: 2004Q4

REPORT INFORMATION
  Report Type: 
  Country: None (occurrence: None)
  Receive Date: 20041005
  Receipt Date: 20040728
  Transmission Date: 20050328
  Serious: Yes (Other)
  Sender: FDA-Public Use
  Company Number: PHEH2004US08193

PATIENT
  Sex: Female

DRUGS (3)
  1. ESTALIS COMBIPATCH (ESTRADIOL, NORETHISTERONE ACETATE)TARNS-THERAPEUTI [Suspect]
     Indication: HORMONE REPLACEMENT THERAPY
     Dosage: TRANSDERMAL
     Route: 062
     Dates: start: 19990101, end: 20000101
  2. PREMARIN [Suspect]
  3. PREMPHASE 14/14 [Suspect]

REACTIONS (3)
  - BREAST CANCER FEMALE [None]
  - INJURY [None]
  - PAIN [None]
